FAERS Safety Report 5057274-6 (Version None)
Quarter: 2006Q3

REPORT INFORMATION
  Report Type: 
  Country: None (occurrence: None)
  Receive Date: 20060721
  Receipt Date: 20050714
  Transmission Date: 20061208
  Serious: No
  Sender: FDA-Public Use
  Company Number: US-GLAXOSMITHKLINE-A0566223A

PATIENT
  Age: 48 Year
  Sex: Male

DRUGS (6)
  1. AVANDIA [Suspect]
     Dosage: 8MG PER DAY
     Route: 048
     Dates: start: 20030101
  2. AMARYL [Concomitant]
  3. RITALIN [Concomitant]
  4. PROZAC [Concomitant]
  5. SINGULAIR [Concomitant]
  6. HYZAAR [Concomitant]

REACTIONS (1)
  - TOOTH DISORDER [None]
